FAERS Safety Report 20558122 (Version 3)
Quarter: 2022Q1

REPORT INFORMATION
  Report Type: Spontaneous
  Country: MX (occurrence: MX)
  Receive Date: 20220307
  Receipt Date: 20220317
  Transmission Date: 20220423
  Serious: Yes (Other)
  Sender: FDA-Public Use
  Company Number: MX-UCBSA-2022010971

PATIENT
  Age: 68 Year
  Sex: Female
  Weight: 58 kg

DRUGS (4)
  1. BRIVIACT [Suspect]
     Active Substance: BRIVARACETAM
     Indication: Epilepsy
     Dosage: 25 MILLIGRAM, 2X/DAY (BREAKS THE TABLET TO BE ABLE TO TAKE IT)
     Route: 048
     Dates: start: 202011
  2. BRIVIACT [Suspect]
     Active Substance: BRIVARACETAM
     Dosage: HIGHER DOSES
  3. ZESTRIL [Concomitant]
     Active Substance: LISINOPRIL
     Indication: Blood pressure measurement
     Dosage: 15MG DAILY
  4. CRESTOR [Concomitant]
     Active Substance: ROSUVASTATIN CALCIUM
     Indication: Pancreatitis
     Dosage: 10MG DAILY

REACTIONS (6)
  - COVID-19 [Recovered/Resolved]
  - Exposure to SARS-CoV-2 [Unknown]
  - Anxiety [Recovering/Resolving]
  - Nausea [Recovered/Resolved]
  - SARS-CoV-2 test negative [Unknown]
  - Off label use [Unknown]

NARRATIVE: CASE EVENT DATE: 20220101
